FAERS Safety Report 7571425-0 (Version None)
Quarter: 2011Q2

REPORT INFORMATION
  Report Type: 
  Country: None (occurrence: None)
  Receive Date: 20110624
  Receipt Date: 20110614
  Transmission Date: 20111010
  Serious: Yes (Other)
  Sender: FDA-Public Use
  Company Number: TN-JNJFOC-20110607492

PATIENT
  Age: 89 Year
  Sex: Male

DRUGS (3)
  1. FUROSEMIDE [Concomitant]
     Indication: HYPERTENSION
  2. ACETAMINOPHEN [Suspect]
  3. ACETAMINOPHEN [Suspect]
     Indication: ARTHRALGIA

REACTIONS (1)
  - DRUG ERUPTION [None]
